FAERS Safety Report 20151301 (Version 1)
Quarter: 2021Q4

REPORT INFORMATION
  Report Type: Spontaneous
  Country: AT (occurrence: AT)
  Receive Date: 20211206
  Receipt Date: 20211206
  Transmission Date: 20220303
  Serious: Yes (Hospitalization)
  Sender: FDA-Public Use
  Company Number: AT-002147023-NVSC2021AT221098

PATIENT
  Age: 82 Year
  Sex: Female

DRUGS (1)
  1. CITALOPRAM [Suspect]
     Active Substance: CITALOPRAM HYDROBROMIDE
     Indication: Product used for unknown indication
     Dosage: 20 MG
     Route: 065

REACTIONS (7)
  - Flushing [Unknown]
  - Hypertension [Recovered/Resolved]
  - Fatigue [Unknown]
  - Hypercholesterolaemia [Not Recovered/Not Resolved]
  - Stress [Unknown]
  - Chest discomfort [Unknown]
  - Overdose [Unknown]
